FAERS Safety Report 9497288 (Version 2)
Quarter: 2013Q4

REPORT INFORMATION
  Report Type: Spontaneous
  Country: US (occurrence: US)
  Receive Date: 20130904
  Receipt Date: 20131202
  Transmission Date: 20140711
  Serious: No
  Sender: FDA-Public Use
  Company Number: US-AMGEN-USASP2013055928

PATIENT
  Age: 61 Year
  Sex: Female

DRUGS (1)
  1. ENBREL [Suspect]
     Indication: RHEUMATOID ARTHRITIS
     Dosage: 50 MG, EVERY 10 DAYS
     Route: 058
     Dates: start: 2005, end: 201306

REACTIONS (7)
  - Pain in extremity [Unknown]
  - Contusion [Not Recovered/Not Resolved]
  - Erythema [Not Recovered/Not Resolved]
  - Inflammation [Unknown]
  - Arthritis [Unknown]
  - Arthralgia [Unknown]
  - Burning sensation [Unknown]
